FAERS Safety Report 7356372-1 (Version None)
Quarter: 2011Q1

REPORT INFORMATION
  Report Type: 
  Country: None (occurrence: None)
  Receive Date: 20110316
  Receipt Date: 20110311
  Transmission Date: 20110831
  Serious: Yes (Other)
  Sender: FDA-Public Use
  Company Number: BR-PFIZER INC-2010179393

PATIENT
  Age: 55 Year
  Sex: Female
  Weight: 43 kg

DRUGS (9)
  1. CHAMPIX [Suspect]
     Indication: TOBACCO USER
     Dosage: UNK
     Route: 048
     Dates: start: 20101210, end: 20101201
  2. OMEPRAZOLE [Concomitant]
     Indication: ABDOMINAL PAIN UPPER
     Dosage: UNK
  3. CHAMPIX [Suspect]
     Dosage: 1 MG, 2X/DAY
     Route: 048
     Dates: start: 20101217, end: 20101201
  4. CHAMPIX [Suspect]
     Dosage: 0.5 MG, 2X/DAY
     Route: 048
     Dates: start: 20101201, end: 20101201
  5. LORAZEPAM [Concomitant]
     Indication: SLEEP DISORDER
     Dosage: UNK
     Dates: start: 20100901
  6. CHAMPIX [Suspect]
     Dosage: UNK
     Dates: start: 20110103, end: 20110101
  7. FEXOFENADINE [Concomitant]
     Indication: ANTIALLERGIC THERAPY
     Dosage: UNK
  8. NEXIUM [Concomitant]
     Indication: GASTRIC DISORDER
     Dosage: UNK
     Dates: start: 20101101
  9. RANITIDINE [Concomitant]
     Indication: ABDOMINAL PAIN UPPER
     Dosage: UNK

REACTIONS (2)
  - COUGH [None]
  - BRONCHITIS [None]
